FAERS Safety Report 14871876 (Version 2)
Quarter: 2018Q2

REPORT INFORMATION
  Report Type: Report from Study
  Country: US (occurrence: AR)
  Receive Date: 20180509
  Receipt Date: 20180529
  Transmission Date: 20180711
  Serious: Yes (Death, Hospitalization, Other)
  Sender: FDA-Public Use
  Company Number: US-SUNOVION-2018SUN001859

PATIENT
  Age: 65 Year
  Sex: Male

DRUGS (2)
  1. INDACATEROL [Suspect]
     Active Substance: INDACATEROL
     Indication: PNEUMONIA
     Dosage: UNK
     Route: 055
  2. INDACATEROL [Suspect]
     Active Substance: INDACATEROL
     Indication: BRONCHITIS

REACTIONS (8)
  - Hypotension [Fatal]
  - Product use in unapproved indication [Unknown]
  - Malaise [Fatal]
  - Swelling [Fatal]
  - Pneumonia [Fatal]
  - Aspiration [Unknown]
  - Secretion discharge [Unknown]
  - Vocal cord disorder [Unknown]

NARRATIVE: CASE EVENT DATE: 20170510
